FAERS Safety Report 17665173 (Version 1)
Quarter: 2020Q2

REPORT INFORMATION
  Report Type: Spontaneous
  Country: US (occurrence: US)
  Receive Date: 20200413
  Receipt Date: 20200413
  Transmission Date: 20200713
  Serious: Yes (Other)
  Sender: FDA-Public Use
  Company Number: None

PATIENT
  Sex: Female

DRUGS (2)
  1. BUPRENORPHINE / NALOXONE [Suspect]
     Active Substance: BUPRENORPHINE\NALOXONE
  2. BUPRENORPHINE 8 MG [Suspect]
     Active Substance: BUPRENORPHINE

REACTIONS (2)
  - Pregnancy [None]
  - Maternal exposure during pregnancy [None]
